FAERS Safety Report 21598837 (Version 1)
Quarter: 2022Q4

REPORT INFORMATION
  Report Type: Spontaneous
  Country: US (occurrence: US)
  Receive Date: 20221115
  Receipt Date: 20221115
  Transmission Date: 20230112
  Serious: No
  Sender: FDA-Public Use
  Company Number: US-SA-SAC20221111000740

PATIENT
  Age: 8 Month
  Sex: Female

DRUGS (1)
  1. DUPIXENT [Suspect]
     Active Substance: DUPILUMAB
     Indication: Dermatitis atopic
     Dosage: 200 MG, Q4W
     Route: 058
     Dates: start: 20220916

REACTIONS (3)
  - Dermatitis atopic [Unknown]
  - Furuncle [Not Recovered/Not Resolved]
  - Inappropriate schedule of product administration [Unknown]
